FAERS Safety Report 7040366-X (Version None)
Quarter: 2010Q4

REPORT INFORMATION
  Report Type: 
  Country: None (occurrence: None)
  Receive Date: 20101008
  Receipt Date: 20101008
  Transmission Date: 20110411
  Serious: Yes (Hospitalization)
  Sender: FDA-Public Use
  Company Number: None

PATIENT
  Sex: Male
  Weight: 98 kg

DRUGS (2)
  1. CASODEX [Suspect]
     Dosage: 3100 MG
  2. LEUPROLIDE ACETATE [Suspect]
     Dosage: 45 MG

REACTIONS (8)
  - ATRIOVENTRICULAR BLOCK [None]
  - BIFASCICULAR BLOCK [None]
  - BLOOD PRESSURE INCREASED [None]
  - DIZZINESS [None]
  - HOT FLUSH [None]
  - SICK SINUS SYNDROME [None]
  - SUPRAVENTRICULAR EXTRASYSTOLES [None]
  - VENTRICULAR EXTRASYSTOLES [None]
